FAERS Safety Report 7957371-9 (Version None)
Quarter: 2011Q4

REPORT INFORMATION
  Report Type: 
  Country: None (occurrence: None)
  Receive Date: 20111205
  Receipt Date: 20111125
  Transmission Date: 20120403
  Serious: Yes (Other)
  Sender: FDA-Public Use
  Company Number: PHHY2011IN103942

PATIENT
  Age: 61 Year
  Sex: Male

DRUGS (3)
  1. TORSEMIDE [Suspect]
     Dosage: 20 MG, BID
  2. FUROSEMIDE [Suspect]
     Dosage: 40 MG, BID
  3. METOLAZONE [Suspect]
     Dosage: 5 MG, QD

REACTIONS (4)
  - AZOTAEMIA [None]
  - BLOOD CREATININE INCREASED [None]
  - RENAL FAILURE CHRONIC [None]
  - WHITE BLOOD CELL COUNT DECREASED [None]
